FAERS Safety Report 10888371 (Version 3)
Quarter: 2015Q2

REPORT INFORMATION
  Report Type: Spontaneous
  Country: AR (occurrence: AR)
  Receive Date: 20150305
  Receipt Date: 20150408
  Transmission Date: 20150821
  Serious: Yes (Other)
  Sender: FDA-Public Use
  Company Number: AR-AMGEN-ARGSP2014052549

PATIENT
  Age: 59 Year
  Sex: Female

DRUGS (2)
  1. ENBREL [Suspect]
     Active Substance: ETANERCEPT
     Dosage: UNK
     Route: 065
  2. ENBREL [Suspect]
     Active Substance: ETANERCEPT
     Indication: RHEUMATOID ARTHRITIS
     Dosage: 50 MG, WEEKLY
     Route: 065
     Dates: start: 20130213, end: 201407

REACTIONS (9)
  - Hypokinesia [Recovering/Resolving]
  - Blood pressure abnormal [Not Recovered/Not Resolved]
  - Lung disorder [Recovering/Resolving]
  - Speech disorder [Unknown]
  - Mental disorder [Unknown]
  - Pain [Recovering/Resolving]
  - Liver disorder [Not Recovered/Not Resolved]
  - Deafness [Not Recovered/Not Resolved]
  - Urinary incontinence [Not Recovered/Not Resolved]

NARRATIVE: CASE EVENT DATE: 201407
